FAERS Safety Report 18159002 (Version 2)
Quarter: 2020Q3

REPORT INFORMATION
  Report Type: Report from Study
  Country: BE (occurrence: BE)
  Receive Date: 20200817
  Receipt Date: 20200827
  Transmission Date: 20201103
  Serious: Yes (Hospitalization)
  Sender: FDA-Public Use
  Company Number: BE-BRISTOL-MYERS SQUIBB COMPANY-BMS-2020-053481

PATIENT
  Age: 78 Year
  Sex: Female
  Weight: 72 kg

DRUGS (3)
  1. CLEXANE [Concomitant]
     Active Substance: ENOXAPARIN SODIUM
     Indication: PRODUCT USED FOR UNKNOWN INDICATION
     Dosage: 40 MILLIGRAM
     Route: 058
  2. NIVOLUMAB [Suspect]
     Active Substance: NIVOLUMAB
     Indication: RENAL CELL CARCINOMA
     Dosage: UNK, Q3WK
     Route: 042
     Dates: start: 20200622
  3. IPILIMUMAB [Suspect]
     Active Substance: IPILIMUMAB
     Indication: RENAL CELL CARCINOMA
     Dosage: UNK, Q3WK
     Route: 042
     Dates: start: 20200622

REACTIONS (20)
  - Nausea [Recovered/Resolved]
  - Oropharyngeal pain [Not Recovered/Not Resolved]
  - Asthenia [Not Recovered/Not Resolved]
  - Dysphagia [Unknown]
  - Fall [Unknown]
  - Dysphonia [Not Recovered/Not Resolved]
  - Dizziness [Not Recovered/Not Resolved]
  - Weight decreased [Not Recovered/Not Resolved]
  - Constipation [Recovered/Resolved]
  - Pruritus [Recovered/Resolved]
  - Back pain [Recovering/Resolving]
  - Decreased appetite [Not Recovered/Not Resolved]
  - Rash [Recovered/Resolved]
  - Vomiting [Recovered/Resolved]
  - Diarrhoea [Recovered/Resolved]
  - Blood urine present [Recovered/Resolved]
  - Swelling face [Recovered/Resolved]
  - Bowel movement irregularity [Unknown]
  - Retching [Not Recovered/Not Resolved]
  - Musculoskeletal pain [Unknown]

NARRATIVE: CASE EVENT DATE: 20200622
